FAERS Safety Report 15726184 (Version 1)
Quarter: 2018Q4

REPORT INFORMATION
  Report Type: Report from Study
  Country: None (occurrence: US)
  Receive Date: 20181216
  Receipt Date: 20181216
  Transmission Date: 20190205
  Serious: Yes (Other)
  Sender: FDA-Public Use
  Company Number: US-ABBVIE-18K-163-2586996-00

PATIENT
  Sex: Male

DRUGS (1)
  1. HUMIRA [Suspect]
     Active Substance: ADALIMUMAB
     Indication: CROHN^S DISEASE
     Route: 058

REACTIONS (7)
  - Frequent bowel movements [Unknown]
  - Loss of consciousness [Unknown]
  - Crohn^s disease [Unknown]
  - Anal fissure [Unknown]
  - Fistula [Unknown]
  - Drug ineffective [Unknown]
  - Vomiting [Unknown]
